FAERS Safety Report 11933396 (Version 2)
Quarter: 2016Q1

REPORT INFORMATION
  Report Type: Report from Study
  Country: US (occurrence: US)
  Receive Date: 20160121
  Receipt Date: 20160205
  Transmission Date: 20160526
  Serious: No
  Sender: FDA-Public Use
  Company Number: US-AMGEN-USASL2016004468

PATIENT
  Age: 20 Year
  Sex: Male

DRUGS (2)
  1. ENBREL [Suspect]
     Active Substance: ETANERCEPT
     Dosage: 50 MG, QWK
     Route: 065
     Dates: start: 201506, end: 20160111
  2. ENBREL [Suspect]
     Active Substance: ETANERCEPT
     Indication: UVEITIS
     Dosage: 50 MG, Q2WK
     Route: 065
     Dates: start: 201405

REACTIONS (2)
  - Off label use [Unknown]
  - Visual acuity reduced [Unknown]

NARRATIVE: CASE EVENT DATE: 201405
